FAERS Safety Report 7772873-6 (Version None)
Quarter: 2011Q3

REPORT INFORMATION
  Report Type: 
  Country: None (occurrence: None)
  Receive Date: 20110922
  Receipt Date: 20100928
  Transmission Date: 20111222
  Serious: No
  Sender: FDA-Public Use
  Company Number: US-ASTRAZENECA-2010SE41711

PATIENT
  Age: 57 Year
  Sex: Female
  Weight: 66.7 kg

DRUGS (1)
  1. SEROQUEL [Suspect]
     Indication: MOOD SWINGS
     Route: 048
     Dates: start: 20100831

REACTIONS (6)
  - NIGHT SWEATS [None]
  - INSOMNIA [None]
  - HEADACHE [None]
  - FEELING COLD [None]
  - BONE PAIN [None]
  - FATIGUE [None]
